FAERS Safety Report 5910821-1 (Version None)
Quarter: 2008Q4

REPORT INFORMATION
  Report Type: 
  Country: None (occurrence: None)
  Receive Date: 20081006
  Receipt Date: 20081006
  Transmission Date: 20090506
  Serious: Yes (Hospitalization)
  Sender: FDA-Public Use
  Company Number: None

PATIENT
  Age: 27 Year
  Sex: Female
  Weight: 118.6 kg

DRUGS (2)
  1. NUVARING [Suspect]
     Indication: CONTRACEPTION
     Dosage: ONE RING AS DIRECTED VAG
     Route: 067
     Dates: start: 20080501, end: 20080523
  2. NUVARING [Suspect]
     Indication: CONTRACEPTION
     Dosage: ONE RING AS DIRECTED VAG
     Route: 067

REACTIONS (2)
  - FLANK PAIN [None]
  - PULMONARY EMBOLISM [None]
